FAERS Safety Report 4728567-4 (Version None)
Quarter: 2005Q3

REPORT INFORMATION
  Report Type: 
  Country: None (occurrence: None)
  Receive Date: 20050729
  Receipt Date: 20050217
  Transmission Date: 20060218
  Serious: Yes (Hospitalization)
  Sender: FDA-Public Use
  Company Number: AU-BRISTOL-MYERS SQUIBB COMPANY-12868386

PATIENT
  Age: 49 Year
  Sex: Male

DRUGS (2)
  1. ABILIFY [Suspect]
     Dosage: DOSAGE: 15MG DAILY 03-JUN-2004, 30MG DAILY 25-JUN-2004 TO 26-JUL-2004
     Route: 048
     Dates: start: 20040603, end: 20040726
  2. CLOZAPINE [Concomitant]
     Indication: PSYCHOTIC DISORDER
     Dosage: DOSAGE: REDUCING BY 25MG EVERY 3RD DAY
     Route: 048
     Dates: start: 20040603, end: 20040707

REACTIONS (2)
  - DYSURIA [None]
  - MENTAL IMPAIRMENT [None]
